FAERS Safety Report 23238905 (Version 2)
Quarter: 2023Q4

REPORT INFORMATION
  Report Type: Report from Study
  Country: CA (occurrence: None)
  Receive Date: 20231129
  Receipt Date: 20231207
  Transmission Date: 20240109
  Serious: Yes (Other)
  Sender: FDA-Public Use
  Company Number: CA-Orion Corporation ORION PHARMA-TREX2023-0281

PATIENT
  Age: 27 Year
  Sex: Male

DRUGS (3)
  1. METHOTREXATE [Interacting]
     Active Substance: METHOTREXATE
     Indication: Psoriasis
     Dates: start: 202310
  2. CLOZAPINE [Interacting]
     Active Substance: CLOZAPINE
     Indication: Schizophrenia
     Dates: start: 20231011, end: 20231115
  3. CLOZAPINE [Interacting]
     Active Substance: CLOZAPINE
     Dates: start: 202311, end: 20231120

REACTIONS (3)
  - Drug interaction [Unknown]
  - Myelosuppression [Unknown]
  - Neutrophil count decreased [Unknown]

NARRATIVE: CASE EVENT DATE: 20230101
